FAERS Safety Report 7098830-3 (Version None)
Quarter: 2010Q4

REPORT INFORMATION
  Report Type: 
  Country: None (occurrence: None)
  Receive Date: 20101112
  Receipt Date: 20080613
  Transmission Date: 20110411
  Serious: No
  Sender: FDA-Public Use
  Company Number: US-KINGPHARMUSA00001-K200800699

PATIENT
  Age: 69 Year
  Sex: Male

DRUGS (11)
  1. SKELAXIN [Suspect]
     Indication: MUSCLE INJURY
     Dosage: 800 MG, QID
     Route: 048
     Dates: start: 20080609
  2. ^AVACOR^ [Concomitant]
  3. GLUCOVANCE [Concomitant]
     Indication: DIABETES MELLITUS
     Route: 048
  4. DOXAZOSIN NICHE GENERICS [Concomitant]
     Route: 048
  5. ROSIGLITAZONE MALEATE [Concomitant]
  6. METOPROLOL TARTRATE [Concomitant]
     Indication: HYPERTENSION
     Route: 048
  7. FOSINOPRIL SODIUM [Concomitant]
     Indication: HYPERTENSION
     Route: 048
  8. FINASTERIDE [Concomitant]
     Route: 048
  9. HYDROCHLOROTHIAZIDE [Concomitant]
     Route: 048
  10. ASPIRIN [Concomitant]
     Dosage: 81 MG, QD
     Route: 048
  11. VICODIN [Concomitant]
     Indication: MUSCLE INJURY
     Dosage: 5/500 MG, QID
     Route: 048
     Dates: start: 20080609

REACTIONS (1)
  - EAR PAIN [None]
